FAERS Safety Report 17901502 (Version 2)
Quarter: 2020Q3

REPORT INFORMATION
  Report Type: Spontaneous
  Country: US (occurrence: US)
  Receive Date: 20200616
  Receipt Date: 20200825
  Transmission Date: 20201103
  Serious: No
  Sender: FDA-Public Use
  Company Number: US-ALVOGEN-2020-ALVOGEN-108568

PATIENT
  Age: 34 Year
  Sex: Female

DRUGS (5)
  1. GRALISE [Suspect]
     Active Substance: GABAPENTIN
     Indication: MYALGIA
     Dosage: STRENGTH: 600 MG
     Route: 048
  2. PROZAC [Concomitant]
     Active Substance: FLUOXETINE HYDROCHLORIDE
     Indication: PRODUCT USED FOR UNKNOWN INDICATION
  3. GRALISE [Suspect]
     Active Substance: GABAPENTIN
     Indication: MYALGIA
     Dosage: STRENGTH: 600 MG
     Route: 048
     Dates: start: 20180906
  4. HYDROXYZINE PAMOATE. [Concomitant]
     Active Substance: HYDROXYZINE PAMOATE
     Indication: PRODUCT USED FOR UNKNOWN INDICATION
  5. GRALISE [Suspect]
     Active Substance: GABAPENTIN
     Indication: MYALGIA
     Dosage: QD
     Route: 048
     Dates: start: 20180906

REACTIONS (4)
  - Thyroid disorder [Unknown]
  - Alopecia [Unknown]
  - Product use in unapproved indication [Unknown]
  - Weight increased [Unknown]

NARRATIVE: CASE EVENT DATE: 20180906
